FAERS Safety Report 10238438 (Version 1)
Quarter: 2014Q2

REPORT INFORMATION
  Report Type: Spontaneous
  Country: IE (occurrence: IE)
  Receive Date: 20140616
  Receipt Date: 20140616
  Transmission Date: 20141212
  Serious: No
  Sender: FDA-Public Use
  Company Number: PHFR2014IE004090

PATIENT
  Sex: Female

DRUGS (6)
  1. TOBI [Suspect]
     Indication: BRONCHIECTASIS
     Dosage: UKN, BID (MORNING AND EVENING)
     Route: 055
  2. TOBI [Interacting]
     Indication: PSEUDOMONAS INFECTION
     Dosage: UNK
     Route: 055
     Dates: start: 20140607
  3. TOBI [Interacting]
     Dosage: UNK
     Route: 055
  4. TOBI [Interacting]
     Dosage: UNK
     Route: 055
     Dates: start: 20140609
  5. VENTOLIN [Interacting]
     Dosage: UNK UKN, UNK
  6. SALINE [Interacting]
     Dosage: UNK

REACTIONS (5)
  - Drug interaction [Unknown]
  - Chest discomfort [Recovering/Resolving]
  - Anxiety [Unknown]
  - Wrong device used [Unknown]
  - Wrong technique in drug usage process [Unknown]
